FAERS Safety Report 15949618 (Version 5)
Quarter: 2020Q1

REPORT INFORMATION
  Report Type: Spontaneous
  Country: US (occurrence: US)
  Receive Date: 20190211
  Receipt Date: 20200130
  Transmission Date: 20200409
  Serious: Yes (Other)
  Sender: FDA-Public Use
  Company Number: US-ASTRAZENECA-2018SF25954

PATIENT
  Age: 24137 Day
  Sex: Male
  Weight: 85.7 kg

DRUGS (21)
  1. FINASTERIDE. [Concomitant]
     Active Substance: FINASTERIDE
  2. NEXIUM [Suspect]
     Active Substance: ESOMEPRAZOLE MAGNESIUM
     Indication: GASTROOESOPHAGEAL REFLUX DISEASE
     Dosage: GENERIC
     Route: 065
     Dates: start: 201502, end: 201812
  3. CLONIDINE. [Concomitant]
     Active Substance: CLONIDINE
  4. HEPARIN [Concomitant]
     Active Substance: HEPARIN SODIUM
  5. LOSARTAN. [Concomitant]
     Active Substance: LOSARTAN
  6. TRICOR [Concomitant]
     Active Substance: FENOFIBRATE
  7. NEXIUM [Suspect]
     Active Substance: ESOMEPRAZOLE MAGNESIUM
     Indication: GASTROOESOPHAGEAL REFLUX DISEASE
     Route: 048
     Dates: start: 200201, end: 201812
  8. LANSOPRAZOLE. [Suspect]
     Active Substance: LANSOPRAZOLE
     Indication: GASTROOESOPHAGEAL REFLUX DISEASE
     Route: 065
     Dates: start: 200111, end: 201812
  9. CLOPIDOGREL [Concomitant]
     Active Substance: CLOPIDOGREL BISULFATE
  10. FUROSEMIDE. [Concomitant]
     Active Substance: FUROSEMIDE
  11. METOPROLOL. [Concomitant]
     Active Substance: METOPROLOL
  12. LEVOTHYROXINE. [Concomitant]
     Active Substance: LEVOTHYROXINE
  13. XARELTO [Concomitant]
     Active Substance: RIVAROXABAN
  14. ZETIA [Concomitant]
     Active Substance: EZETIMIBE
  15. NEXIUM [Suspect]
     Active Substance: ESOMEPRAZOLE MAGNESIUM
     Indication: GASTROOESOPHAGEAL REFLUX DISEASE
     Route: 048
     Dates: start: 20180827
  16. PIOGLITAZONE. [Concomitant]
     Active Substance: PIOGLITAZONE
  17. NORVASC [Concomitant]
     Active Substance: AMLODIPINE BESYLATE
  18. OMEPRAZOLE. [Suspect]
     Active Substance: OMEPRAZOLE
     Indication: GASTROOESOPHAGEAL REFLUX DISEASE
     Route: 065
     Dates: start: 200212, end: 201812
  19. NEXIUM [Suspect]
     Active Substance: ESOMEPRAZOLE MAGNESIUM
     Indication: GASTROOESOPHAGEAL REFLUX DISEASE
     Route: 048
     Dates: start: 20110328
  20. ATORVASTATIN [Concomitant]
     Active Substance: ATORVASTATIN
  21. LANTUS [Concomitant]
     Active Substance: INSULIN GLARGINE

REACTIONS (3)
  - Renal injury [Unknown]
  - Chronic kidney disease [Not Recovered/Not Resolved]
  - Acute kidney injury [Unknown]

NARRATIVE: CASE EVENT DATE: 20110328
